FAERS Safety Report 12654428 (Version 1)
Quarter: 2016Q3

REPORT INFORMATION
  Report Type: Spontaneous
  Country: US (occurrence: None)
  Receive Date: 20160815
  Receipt Date: 20160815
  Transmission Date: 20161109
  Serious: No
  Sender: FDA-Public Use
  Company Number: None

PATIENT
  Age: 46 Year
  Sex: Male

DRUGS (4)
  1. HARVONI [Suspect]
     Active Substance: LEDIPASVIR\SOFOSBUVIR
     Indication: CHRONIC HEPATITIS C
     Route: 048
     Dates: start: 20160729, end: 20160812
  2. LAMICTAL [Concomitant]
     Active Substance: LAMOTRIGINE
  3. KLONIPIN [Concomitant]
     Active Substance: CLONAZEPAM
  4. GABAPENTIN. [Concomitant]
     Active Substance: GABAPENTIN

REACTIONS (5)
  - Fatigue [None]
  - Dyspepsia [None]
  - Headache [None]
  - Musculoskeletal stiffness [None]
  - Tremor [None]

NARRATIVE: CASE EVENT DATE: 20160812
